FAERS Safety Report 9671875 (Version 2)
Quarter: 2013Q4

REPORT INFORMATION
  Report Type: Report from Study
  Country: US (occurrence: US)
  Receive Date: 20131106
  Receipt Date: 20131127
  Transmission Date: 20140711
  Serious: Yes (Hospitalization, Other)
  Sender: FDA-Public Use
  Company Number: US-GLAXOSMITHKLINE-A1028838B

PATIENT
  Age: 63 Year
  Sex: Male

DRUGS (16)
  1. OFATUMUMAB [Suspect]
     Indication: CHRONIC LYMPHOCYTIC LEUKAEMIA
     Route: 042
     Dates: start: 20130606, end: 20130924
  2. INVESTIGATIONAL DRUG [Suspect]
     Indication: CHRONIC LYMPHOCYTIC LEUKAEMIA
     Dosage: 100MG TWICE PER DAY
     Dates: start: 20130911, end: 20130924
  3. KYTRIL [Concomitant]
  4. HUMULIN N [Concomitant]
  5. MORPHINE SULFATE [Concomitant]
  6. ISORDIL [Concomitant]
  7. ATIVAN [Concomitant]
  8. COMPAZINE [Concomitant]
  9. ZYLOPRIM [Concomitant]
  10. ADVAIR [Concomitant]
  11. COMBIVENT [Concomitant]
  12. LASIX [Concomitant]
  13. LEVOTHROID [Concomitant]
  14. NITROSTAT [Concomitant]
  15. ZESTRIL [Concomitant]
  16. TENORMIN [Concomitant]

REACTIONS (2)
  - Urosepsis [Unknown]
  - Urinary tract infection [Unknown]
